FAERS Safety Report 4986379-0 (Version None)
Quarter: 2006Q2

REPORT INFORMATION
  Report Type: 
  Country: None (occurrence: None)
  Receive Date: 20060428
  Receipt Date: 20060421
  Transmission Date: 20061013
  Serious: Yes (Other)
  Sender: FDA-Public Use
  Company Number: ES-GLAXOSMITHKLINE-B0421661A

PATIENT
  Age: 11 Year
  Sex: Male
  Weight: 29 kg

DRUGS (5)
  1. ABACAVIR [Suspect]
     Indication: SYSTEMIC ANTIVIRAL TREATMENT
     Route: 065
  2. LAMIVUDINE [Suspect]
     Indication: SYSTEMIC ANTIVIRAL TREATMENT
     Route: 065
  3. EFAVIRENZ [Suspect]
     Indication: SYSTEMIC ANTIVIRAL TREATMENT
     Route: 065
  4. STAVUDINE [Concomitant]
     Indication: SYSTEMIC ANTIVIRAL TREATMENT
     Route: 065
  5. NELFINAVIR [Concomitant]
     Indication: SYSTEMIC ANTIVIRAL TREATMENT
     Route: 065

REACTIONS (8)
  - ABNORMAL DREAMS [None]
  - ANXIETY [None]
  - HEADACHE [None]
  - MAJOR DEPRESSION [None]
  - MENTAL DISORDER [None]
  - MOOD ALTERED [None]
  - SCHOOL REFUSAL [None]
  - SOCIAL AVOIDANT BEHAVIOUR [None]
